FAERS Safety Report 17250016 (Version 2)
Quarter: 2020Q1

REPORT INFORMATION
  Report Type: Report from Study
  Country: None (occurrence: CA)
  Receive Date: 20200109
  Receipt Date: 20200213
  Transmission Date: 20200409
  Serious: Yes (Hospitalization, Other)
  Sender: FDA-Public Use
  Company Number: CA-ABBVIE-20K-028-3221939-00

PATIENT
  Age: 65 Year
  Sex: Female

DRUGS (1)
  1. HUMIRA [Suspect]
     Active Substance: ADALIMUMAB
     Indication: RHEUMATOID ARTHRITIS
     Route: 058
     Dates: start: 20151213

REACTIONS (9)
  - Stress cardiomyopathy [Not Recovered/Not Resolved]
  - General physical health deterioration [Unknown]
  - Bronchitis [Unknown]
  - Anxiety [Unknown]
  - Stress [Unknown]
  - Emotional disorder [Unknown]
  - Blood cholesterol increased [Unknown]
  - Abdominal discomfort [Unknown]
  - Hypertension [Unknown]

NARRATIVE: CASE EVENT DATE: 2019
